FAERS Safety Report 4330862-8 (Version None)
Quarter: 2004Q1

REPORT INFORMATION
  Report Type: 
  Country: None (occurrence: None)
  Receive Date: 20040331
  Receipt Date: 20040312
  Transmission Date: 20041129
  Serious: Yes (Hospitalization, Disabling)
  Sender: FDA-Public Use
  Company Number: USA040361853

PATIENT
  Age: 34 Year
  Sex: Female

DRUGS (3)
  1. HUMULIN N [Suspect]
  2. HUMULIN R [Suspect]
     Dates: end: 20040101
  3. HUMALOG [Suspect]
     Dates: start: 20040101

REACTIONS (6)
  - BLINDNESS [None]
  - BLOOD GLUCOSE INCREASED [None]
  - DRUG EXPOSURE DURING PREGNANCY [None]
  - KETOACIDOSIS [None]
  - MOOD SWINGS [None]
  - PREGNANCY [None]
